FAERS Safety Report 25612385 (Version 1)
Quarter: 2025Q3

REPORT INFORMATION
  Report Type: Spontaneous
  Country: EU (occurrence: EU)
  Receive Date: 20250728
  Receipt Date: 20250728
  Transmission Date: 20251020
  Serious: Yes (Life-Threatening, Hospitalization)
  Sender: MYLAN
  Company Number: None

PATIENT
  Age: 43 Year
  Sex: Male
  Weight: 84.9 kg

DRUGS (40)
  1. ETOPOSIDE [Suspect]
     Active Substance: ETOPOSIDE
     Indication: Haemophagocytic lymphohistiocytosis
     Dates: start: 20250112, end: 20250112
  2. ETOPOSIDE [Suspect]
     Active Substance: ETOPOSIDE
     Route: 042
     Dates: start: 20250112, end: 20250112
  3. ETOPOSIDE [Suspect]
     Active Substance: ETOPOSIDE
     Route: 042
     Dates: start: 20250112, end: 20250112
  4. ETOPOSIDE [Suspect]
     Active Substance: ETOPOSIDE
     Dates: start: 20250112, end: 20250112
  5. LORLATINIB [Suspect]
     Active Substance: LORLATINIB
     Indication: Diffuse large B-cell lymphoma stage IV
     Dosage: 100 MILLIGRAM, QD
     Dates: start: 20250112, end: 20250219
  6. LORLATINIB [Suspect]
     Active Substance: LORLATINIB
     Dosage: 100 MILLIGRAM, QD
     Dates: start: 20250112, end: 20250219
  7. LORLATINIB [Suspect]
     Active Substance: LORLATINIB
     Dosage: 100 MILLIGRAM, QD
     Route: 048
     Dates: start: 20250112, end: 20250219
  8. LORLATINIB [Suspect]
     Active Substance: LORLATINIB
     Dosage: 100 MILLIGRAM, QD
     Route: 048
     Dates: start: 20250112, end: 20250219
  9. LORLATINIB [Suspect]
     Active Substance: LORLATINIB
     Dosage: 100 MILLIGRAM, QD
     Dates: start: 20250228, end: 20250307
  10. LORLATINIB [Suspect]
     Active Substance: LORLATINIB
     Dosage: 100 MILLIGRAM, QD
     Dates: start: 20250228, end: 20250307
  11. LORLATINIB [Suspect]
     Active Substance: LORLATINIB
     Dosage: 100 MILLIGRAM, QD
     Route: 048
     Dates: start: 20250228, end: 20250307
  12. LORLATINIB [Suspect]
     Active Substance: LORLATINIB
     Dosage: 100 MILLIGRAM, QD
     Route: 048
     Dates: start: 20250228, end: 20250307
  13. LORLATINIB [Suspect]
     Active Substance: LORLATINIB
     Dosage: 100 MILLIGRAM, QD
     Dates: start: 20250410
  14. LORLATINIB [Suspect]
     Active Substance: LORLATINIB
     Dosage: 100 MILLIGRAM, QD
     Route: 048
     Dates: start: 20250410
  15. LORLATINIB [Suspect]
     Active Substance: LORLATINIB
     Dosage: 100 MILLIGRAM, QD
     Dates: start: 20250410
  16. LORLATINIB [Suspect]
     Active Substance: LORLATINIB
     Dosage: 100 MILLIGRAM, QD
     Route: 048
     Dates: start: 20250410
  17. CYCLOPHOSPHAMIDE [Suspect]
     Active Substance: CYCLOPHOSPHAMIDE
     Indication: Haemophagocytic lymphohistiocytosis
     Dates: start: 20250110, end: 20250110
  18. CYCLOPHOSPHAMIDE [Suspect]
     Active Substance: CYCLOPHOSPHAMIDE
     Route: 042
     Dates: start: 20250110, end: 20250110
  19. CYCLOPHOSPHAMIDE [Suspect]
     Active Substance: CYCLOPHOSPHAMIDE
     Route: 042
     Dates: start: 20250110, end: 20250110
  20. CYCLOPHOSPHAMIDE [Suspect]
     Active Substance: CYCLOPHOSPHAMIDE
     Dates: start: 20250110, end: 20250110
  21. VINCRISTINE [Suspect]
     Active Substance: VINCRISTINE
     Indication: Haemophagocytic lymphohistiocytosis
     Dates: start: 20250110, end: 20250110
  22. VINCRISTINE [Suspect]
     Active Substance: VINCRISTINE
     Route: 042
     Dates: start: 20250110, end: 20250110
  23. VINCRISTINE [Suspect]
     Active Substance: VINCRISTINE
     Route: 042
     Dates: start: 20250110, end: 20250110
  24. VINCRISTINE [Suspect]
     Active Substance: VINCRISTINE
     Dates: start: 20250110, end: 20250110
  25. PANTOPRAZOLE SODIUM [Concomitant]
     Active Substance: PANTOPRAZOLE SODIUM
     Indication: Product used for unknown indication
     Dosage: 40 MILLIGRAM, QD
  26. PANTOPRAZOLE SODIUM [Concomitant]
     Active Substance: PANTOPRAZOLE SODIUM
     Dosage: 40 MILLIGRAM, QD
     Route: 048
  27. PANTOPRAZOLE SODIUM [Concomitant]
     Active Substance: PANTOPRAZOLE SODIUM
     Dosage: 40 MILLIGRAM, QD
     Route: 048
  28. PANTOPRAZOLE SODIUM [Concomitant]
     Active Substance: PANTOPRAZOLE SODIUM
     Dosage: 40 MILLIGRAM, QD
  29. URSODIOL [Concomitant]
     Active Substance: URSODIOL
     Indication: Product used for unknown indication
     Dosage: 500 MILLIGRAM, BID (12 HR)
  30. URSODIOL [Concomitant]
     Active Substance: URSODIOL
     Dosage: 500 MILLIGRAM, BID (12 HR)
     Route: 048
  31. URSODIOL [Concomitant]
     Active Substance: URSODIOL
     Dosage: 500 MILLIGRAM, BID (12 HR)
     Route: 048
  32. URSODIOL [Concomitant]
     Active Substance: URSODIOL
     Dosage: 500 MILLIGRAM, BID (12 HR)
  33. VALACYCLOVIR [Concomitant]
     Active Substance: VALACYCLOVIR HYDROCHLORIDE
     Indication: Opportunistic infection prophylaxis
     Dosage: 500 MILLIGRAM, BID (12 HR)
  34. VALACYCLOVIR [Concomitant]
     Active Substance: VALACYCLOVIR HYDROCHLORIDE
     Dosage: 500 MILLIGRAM, BID (12 HR)
     Route: 048
  35. VALACYCLOVIR [Concomitant]
     Active Substance: VALACYCLOVIR HYDROCHLORIDE
     Dosage: 500 MILLIGRAM, BID (12 HR)
     Route: 048
  36. VALACYCLOVIR [Concomitant]
     Active Substance: VALACYCLOVIR HYDROCHLORIDE
     Dosage: 500 MILLIGRAM, BID (12 HR)
  37. ATOVAQUONE [Concomitant]
     Active Substance: ATOVAQUONE
     Indication: Opportunistic infection prophylaxis
     Dosage: 1 DOSAGE FORM, BID (12 HR)
  38. ATOVAQUONE [Concomitant]
     Active Substance: ATOVAQUONE
     Dosage: 1 DOSAGE FORM, BID (12 HR)
     Route: 048
  39. ATOVAQUONE [Concomitant]
     Active Substance: ATOVAQUONE
     Dosage: 1 DOSAGE FORM, BID (12 HR)
     Route: 048
  40. ATOVAQUONE [Concomitant]
     Active Substance: ATOVAQUONE
     Dosage: 1 DOSAGE FORM, BID (12 HR)

REACTIONS (1)
  - Agranulocytosis [Recovered/Resolved]

NARRATIVE: CASE EVENT DATE: 20250117
